FAERS Safety Report 9020118 (Version 1)
Quarter: 2013Q1

REPORT INFORMATION
  Report Type: Spontaneous
  Country: US (occurrence: US)
  Receive Date: 20130119
  Receipt Date: 20130119
  Transmission Date: 20140127
  Serious: No
  Sender: FDA-Public Use
  Company Number: US-ALLERGAN-1210800US

PATIENT
  Age: 65 Year
  Sex: Female

DRUGS (2)
  1. BOTOX? [Suspect]
     Indication: MIGRAINE
     Dosage: UNK, SINGLE
     Route: 030
     Dates: start: 20120723, end: 20120723
  2. BOTOX? [Suspect]
     Indication: TEMPOROMANDIBULAR JOINT SYNDROME

REACTIONS (8)
  - Laryngitis [Unknown]
  - Mastication disorder [Unknown]
  - Insomnia [Unknown]
  - Dysphonia [Unknown]
  - Facial paresis [Unknown]
  - Hypoaesthesia [Unknown]
  - Pain in jaw [Unknown]
  - Hypoaesthesia [Unknown]
